FAERS Safety Report 26095390 (Version 1)
Quarter: 2025Q4

REPORT INFORMATION
  Report Type: Report from Study
  Country: CA (occurrence: CA)
  Receive Date: 20251127
  Receipt Date: 20251127
  Transmission Date: 20260117
  Serious: Yes (Other)
  Sender: CELLTRION
  Company Number: CA-CELLTRION INC.-2025CA042135

PATIENT

DRUGS (4)
  1. OMALIZUMAB [Suspect]
     Active Substance: OMALIZUMAB
     Indication: Asthma
     Dosage: 300 MG
     Route: 065
  2. OMALIZUMAB [Suspect]
     Active Substance: OMALIZUMAB
     Dosage: 300 MG
     Route: 058
  3. ADVAIR HFA [Concomitant]
     Active Substance: FLUTICASONE PROPIONATE\SALMETEROL XINAFOATE
     Indication: Product used for unknown indication
     Route: 065
  4. SPIRIVA [Concomitant]
     Active Substance: TIOTROPIUM BROMIDE MONOHYDRATE
     Indication: Product used for unknown indication
     Route: 065

REACTIONS (16)
  - Wheezing [Unknown]
  - Chest discomfort [Unknown]
  - Chronic lymphocytic leukaemia [Unknown]
  - Claustrophobia [Unknown]
  - Dust allergy [Unknown]
  - Dyspnoea [Unknown]
  - FEV1/FVC ratio decreased [Unknown]
  - Forced expiratory volume decreased [Unknown]
  - Insomnia [Unknown]
  - Perfume sensitivity [Unknown]
  - Sensitivity to weather change [Unknown]
  - Smoke sensitivity [Unknown]
  - Throat clearing [Unknown]
  - Weight decreased [Unknown]
  - Asthma [Unknown]
  - Cough [Unknown]
